FAERS Safety Report 6476006-8 (Version None)
Quarter: 2009Q4

REPORT INFORMATION
  Report Type: 
  Country: None (occurrence: None)
  Receive Date: 20091204
  Receipt Date: 20090109
  Transmission Date: 20100525
  Serious: No
  Sender: FDA-Public Use
  Company Number: US-AMGEN-KDL327824

PATIENT
  Sex: Female

DRUGS (1)
  1. ENBREL [Suspect]
     Indication: RHEUMATOID ARTHRITIS
     Route: 058
     Dates: start: 20070712

REACTIONS (10)
  - ASTHENIA [None]
  - BONE DISORDER [None]
  - DYSPNOEA [None]
  - FATIGUE [None]
  - GASTROENTERITIS VIRAL [None]
  - HYPERSENSITIVITY [None]
  - INFLUENZA LIKE ILLNESS [None]
  - PAIN [None]
  - RHEUMATOID LUNG [None]
  - UPPER RESPIRATORY TRACT INFECTION [None]
